FAERS Safety Report 4859999-1 (Version None)
Quarter: 2005Q4

REPORT INFORMATION
  Report Type: 
  Country: None (occurrence: None)
  Receive Date: 20051219
  Receipt Date: 20051130
  Transmission Date: 20060501
  Serious: Yes (Hospitalization)
  Sender: FDA-Public Use
  Company Number: JP-MERCK-0512USA00583

PATIENT
  Age: 34 Year
  Sex: Male

DRUGS (3)
  1. PEPCID [Suspect]
     Indication: DUODENAL ULCER
     Route: 042
     Dates: start: 20040607, end: 20040609
  2. FLUMARIN [Suspect]
     Indication: APPENDICITIS
     Route: 041
     Dates: start: 20040601, end: 20040606
  3. [THERAPY UNSPECIFIED] [Concomitant]
     Route: 065

REACTIONS (5)
  - ALANINE AMINOTRANSFERASE INCREASED [None]
  - ASPARTATE AMINOTRANSFERASE INCREASED [None]
  - DUODENAL ULCER [None]
  - HEPATIC FUNCTION ABNORMAL [None]
  - JAUNDICE [None]
